FAERS Safety Report 4724657-0 (Version None)
Quarter: 2005Q3

REPORT INFORMATION
  Report Type: 
  Country: None (occurrence: None)
  Receive Date: 20050719
  Receipt Date: 20050719
  Transmission Date: 20060218
  Serious: Yes (Death, Hospitalization)
  Sender: FDA-Public Use
  Company Number: None

PATIENT
  Sex: Male
  Weight: 94 kg

DRUGS (1)
  1. PENTOSTATIN [Suspect]
     Indication: GRAFT VERSUS HOST DISEASE
     Dosage: SEE IMAGE
     Dates: start: 20050610, end: 20050610

REACTIONS (13)
  - ALANINE AMINOTRANSFERASE INCREASED [None]
  - ASPARTATE AMINOTRANSFERASE INCREASED [None]
  - BLOOD ALKALINE PHOSPHATASE INCREASED [None]
  - BLOOD BILIRUBIN INCREASED [None]
  - CHOLELITHIASIS [None]
  - CONFUSIONAL STATE [None]
  - DIABETES MELLITUS INADEQUATE CONTROL [None]
  - DISEASE PROGRESSION [None]
  - DISORIENTATION [None]
  - GRAFT VERSUS HOST DISEASE [None]
  - HEPATIC FAILURE [None]
  - LIVER DISORDER [None]
  - THERAPY NON-RESPONDER [None]
